FAERS Safety Report 4458528-4 (Version None)
Quarter: 2004Q3

REPORT INFORMATION
  Report Type: 
  Country: None (occurrence: None)
  Receive Date: 20040922
  Receipt Date: 20031023
  Transmission Date: 20050211
  Serious: Yes (Hospitalization)
  Sender: FDA-Public Use
  Company Number: US-SHR-03-010857

PATIENT
  Age: 50 Year
  Sex: Female
  Weight: 89.8 kg

DRUGS (12)
  1. BETASERON [Suspect]
     Indication: MULTIPLE SCLEROSIS
     Dosage: 8 MIU, EVERY 2D, SUBCUTANEOUS
     Route: 058
     Dates: start: 20030524, end: 20030701
  2. BETASERON [Suspect]
     Indication: MULTIPLE SCLEROSIS
     Dosage: 8 MIU, EVERY 2D, SUBCUTANEOUS
     Route: 058
     Dates: start: 20030801, end: 20030910
  3. DEPAKOTE [Concomitant]
  4. WELLBUTRIN [Concomitant]
  5. ZANTAC [Concomitant]
  6. CLARITIN [Concomitant]
  7. EFFEXOR [Concomitant]
  8. ACTIVELLE [Concomitant]
  9. IMITREX ^GLAXO^ (SUMATRIPTAN) [Concomitant]
  10. AMANTADINE (AMANTADINE) [Concomitant]
  11. NORTRIPTYLINE (NROTRIPTYLINE) [Concomitant]
  12. METHADONE HCL [Concomitant]

REACTIONS (8)
  - DRUG HYPERSENSITIVITY [None]
  - INJECTION SITE CELLULITIS [None]
  - INJECTION SITE ERYTHEMA [None]
  - INJECTION SITE INFECTION [None]
  - INJECTION SITE INFLAMMATION [None]
  - INJECTION SITE PRURITUS [None]
  - INJECTION SITE RASH [None]
  - MEDICATION ERROR [None]
